FAERS Safety Report 23669366 (Version 1)
Quarter: 2024Q1

REPORT INFORMATION
  Report Type: Spontaneous
  Country: US (occurrence: None)
  Receive Date: 20240324
  Receipt Date: 20240324
  Transmission Date: 20240410
  Serious: Yes (unspecified)
  Sender: FDA-Public Use
  Company Number: None

PATIENT
  Age: 4 Year
  Sex: Male
  Weight: 15.9 kg

DRUGS (1)
  1. ASPARLAS [Suspect]
     Active Substance: CALASPARGASE PEGOL-MKNL
     Indication: B-cell type acute leukaemia
     Dosage: OTHER FREQUENCY : ONE TIME;?
     Route: 042
     Dates: start: 20230324, end: 20230811

REACTIONS (5)
  - Cough [None]
  - Retching [None]
  - Vomiting [None]
  - Cyanosis [None]
  - Hypoxia [None]

NARRATIVE: CASE EVENT DATE: 20230811
